FAERS Safety Report 7687839-4 (Version None)
Quarter: 2011Q3

REPORT INFORMATION
  Report Type: 
  Country: None (occurrence: None)
  Receive Date: 20110817
  Receipt Date: 20110808
  Transmission Date: 20111222
  Serious: Yes (Other)
  Sender: FDA-Public Use
  Company Number: FR-ASTELLAS-2011EU005370

PATIENT

DRUGS (2)
  1. TACROLIMUS [Suspect]
     Dosage: UNK
     Route: 065
  2. PROGRAF [Suspect]
     Dosage: UNK
     Route: 065

REACTIONS (2)
  - SKIN REACTION [None]
  - DIABETES MELLITUS [None]
